FAERS Safety Report 25414724 (Version 1)
Quarter: 2025Q2

REPORT INFORMATION
  Report Type: Spontaneous
  Country: US (occurrence: US)
  Receive Date: 20250609
  Receipt Date: 20250609
  Transmission Date: 20250716
  Serious: No
  Sender: SANDOZ
  Company Number: US-SANDOZ-SDZ2025US039857

PATIENT
  Sex: Female

DRUGS (1)
  1. ESTRADIOL [Suspect]
     Active Substance: ESTRADIOL
     Indication: Product used for unknown indication
     Dosage: UNK, QW (STRENGTH 0.05 MG / 1 10)
     Route: 062

REACTIONS (3)
  - Poor quality product administered [Unknown]
  - Product use issue [Unknown]
  - Product adhesion issue [Unknown]
